FAERS Safety Report 21434795 (Version 1)
Quarter: 2022Q4

REPORT INFORMATION
  Report Type: Spontaneous
  Country: US (occurrence: None)
  Receive Date: 20221010
  Receipt Date: 20221010
  Transmission Date: 20230113
  Serious: Yes (Death, Hospitalization)
  Sender: FDA-Public Use
  Company Number: US-ROCHE-3195351

PATIENT
  Age: 79 Year
  Sex: Male

DRUGS (3)
  1. TNKASE [Suspect]
     Active Substance: TENECTEPLASE
     Indication: Thrombolysis
     Dosage: NO
     Route: 042
     Dates: start: 20220913, end: 20220913
  2. BRILINTA [Concomitant]
     Active Substance: TICAGRELOR
     Indication: Anticoagulant therapy
  3. METFORMIN [Concomitant]
     Active Substance: METFORMIN HYDROCHLORIDE

REACTIONS (7)
  - Cerebral haemorrhage [Fatal]
  - Cardio-respiratory arrest [Fatal]
  - Pulmonary haemorrhage [Fatal]
  - Haemorrhage [Fatal]
  - Pyrexia [Fatal]
  - Vomiting [Fatal]
  - Off label use [Unknown]

NARRATIVE: CASE EVENT DATE: 20220913
